FAERS Safety Report 11498062 (Version 1)
Quarter: 2015Q3

REPORT INFORMATION
  Report Type: Spontaneous
  Country: DE (occurrence: DE)
  Receive Date: 20150911
  Receipt Date: 20150911
  Transmission Date: 20151125
  Serious: Yes (Other)
  Sender: FDA-Public Use
  Company Number: DE-MYLANLABS-2015M1030478

PATIENT

DRUGS (3)
  1. IBUPROFEN. [Suspect]
     Active Substance: IBUPROFEN
     Indication: PRODUCT USED FOR UNKNOWN INDICATION
     Route: 065
  2. LEVOTHYROXINE SODIUM. [Suspect]
     Active Substance: LEVOTHYROXINE SODIUM
     Indication: HYPOTHYROIDISM
     Dosage: 75 MICROG DAILY, THEN INCREASED TO 100MICROG ONCE DAILY, THEN REDUCED TO A DAILY ALTERNATING REGIMEN
     Route: 065
  3. LEVOTHYROXINE SODIUM. [Suspect]
     Active Substance: LEVOTHYROXINE SODIUM
     Dosage: REDUCED TO ALTERNATING REGIMEN OF 75MCG AND 100MCG
     Route: 065

REACTIONS (2)
  - Hyperthyroidism [Unknown]
  - Gastrointestinal disorder [Unknown]
